FAERS Safety Report 6875908-8 (Version None)
Quarter: 2010Q2

REPORT INFORMATION
  Report Type: 
  Country: None (occurrence: None)
  Receive Date: 20100616
  Receipt Date: 20100329
  Transmission Date: 20101027
  Serious: No
  Sender: FDA-Public Use
  Company Number: DSA_42861_2010

PATIENT
  Sex: Female

DRUGS (7)
  1. XENAZINE [Suspect]
     Indication: HUNTINGTON'S CHOREA
     Dosage: (12.5 MG TID ORAL)
     Route: 048
     Dates: end: 20100322
  2. LEXAPRO [Concomitant]
  3. INVEGA [Concomitant]
  4. RESTORIL /00393701/ [Concomitant]
  5. REMERON [Concomitant]
  6. TRILEPTAL [Concomitant]
  7. HALDOL [Concomitant]

REACTIONS (3)
  - AGGRESSION [None]
  - IRRITABILITY [None]
  - MOOD SWINGS [None]
